FAERS Safety Report 5905352-9 (Version None)
Quarter: 2008Q4

REPORT INFORMATION
  Report Type: 
  Country: None (occurrence: None)
  Receive Date: 20081001
  Receipt Date: 20080924
  Transmission Date: 20090506
  Serious: Yes (Hospitalization)
  Sender: FDA-Public Use
  Company Number: FR-PFIZER INC-2008081003

PATIENT
  Age: 84 Year
  Sex: Male

DRUGS (5)
  1. CELEBREX [Suspect]
     Indication: RHEUMATOID ARTHRITIS
  2. TRINITRINE [Concomitant]
  3. FUROSEMIDE [Concomitant]
  4. FLUTICASONE PROPIONATE [Concomitant]
  5. SALMETEROL [Concomitant]

REACTIONS (1)
  - CARDIAC FAILURE [None]
